FAERS Safety Report 8554389-2 (Version None)
Quarter: 2012Q3

REPORT INFORMATION
  Report Type: 
  Country: None (occurrence: None)
  Receive Date: 20120731
  Receipt Date: 20120723
  Transmission Date: 20120928
  Serious: Yes (Disabling)
  Sender: FDA-Public Use
  Company Number: US-009507513-1207USA009846

PATIENT

DRUGS (8)
  1. CALCICHEW D3 [Concomitant]
     Route: 048
  2. LETROZOLE [Suspect]
     Route: 048
  3. LANSOPRAZOLE [Concomitant]
     Route: 048
  4. ACETAMINOPHEN [Concomitant]
     Route: 048
  5. SERTRALINE HYDROCHLORIDE [Concomitant]
     Route: 048
  6. ZOCOR [Suspect]
     Route: 048
  7. ASPIRIN [Concomitant]
     Route: 048
  8. BISOPROLOL FUMARATE [Concomitant]
     Route: 048

REACTIONS (3)
  - MYALGIA [None]
  - BLOOD CREATINE PHOSPHOKINASE INCREASED [None]
  - ARTHRALGIA [None]
